FAERS Safety Report 7993030-4 (Version None)
Quarter: 2011Q4

REPORT INFORMATION
  Report Type: 
  Country: None (occurrence: None)
  Receive Date: 20111219
  Receipt Date: 20111213
  Transmission Date: 20120403
  Serious: Yes (Life-Threatening, Hospitalization)
  Sender: FDA-Public Use
  Company Number: JP-ASTRAZENECA-2011SE65551

PATIENT
  Age: 3 Month

DRUGS (6)
  1. ASVERIN [Concomitant]
     Route: 048
     Dates: start: 20111025
  2. MEPTIN [Concomitant]
     Route: 055
     Dates: start: 20111025
  3. ONON [Concomitant]
     Route: 048
     Dates: start: 20111025
  4. PULMICORT [Suspect]
     Route: 055
     Dates: start: 20111025
  5. MUCODYNE [Concomitant]
     Route: 048
     Dates: start: 20111025
  6. ERYTHROCIN LACTOBIONATE [Concomitant]
     Route: 048
     Dates: start: 20111025

REACTIONS (3)
  - OFF LABEL USE [None]
  - PNEUMONIA [None]
  - DEHYDRATION [None]
